FAERS Safety Report 12435718 (Version 1)
Quarter: 2016Q2

REPORT INFORMATION
  Report Type: Spontaneous
  Country: US (occurrence: US)
  Receive Date: 20160603
  Receipt Date: 20160603
  Transmission Date: 20160815
  Serious: No
  Sender: FDA-Public Use
  Company Number: US-ROCHE-1724462

PATIENT
  Sex: Female

DRUGS (2)
  1. XELODA [Suspect]
     Active Substance: CAPECITABINE
     Dosage: FOR 7 DAYS
     Route: 048
     Dates: start: 20151201
  2. XELODA [Suspect]
     Active Substance: CAPECITABINE
     Indication: NEOPLASM MALIGNANT
     Dosage: 2 TIMES A DAY FOR 7 DAYS THEN OFF 7 DAYS
     Route: 048
     Dates: start: 20151224

REACTIONS (5)
  - Flatulence [Unknown]
  - Back pain [Unknown]
  - Decreased appetite [Unknown]
  - Nephrolithiasis [Unknown]
  - Diarrhoea [Unknown]
